FAERS Safety Report 6233842-0 (Version None)
Quarter: 2009Q2

REPORT INFORMATION
  Report Type: 
  Country: None (occurrence: None)
  Receive Date: 20090618
  Receipt Date: 20090414
  Transmission Date: 20091009
  Serious: No
  Sender: FDA-Public Use
  Company Number: A0778739A

PATIENT
  Sex: Female

DRUGS (1)
  1. PROMACTA [Suspect]
     Route: 048
     Dates: start: 20090101

REACTIONS (2)
  - FLATULENCE [None]
  - MUCOUS STOOLS [None]
